FAERS Safety Report 9028989 (Version 1)
Quarter: 2013Q1

REPORT INFORMATION
  Report Type: Report from Study
  Country: IT (occurrence: IT)
  Receive Date: 20130123
  Receipt Date: 20130123
  Transmission Date: 20140127
  Serious: Yes (Life-Threatening, Hospitalization)
  Sender: FDA-Public Use
  Company Number: IT-BRISTOL-MYERS SQUIBB COMPANY-17293473

PATIENT
  Age: 46 Year
  Sex: Female
  Weight: 47.7 kg

DRUGS (3)
  1. PACLITAXEL [Suspect]
     Indication: OVARIAN EPITHELIAL CANCER
     Dosage: LAST DOSE:28SEP11
     Route: 042
     Dates: start: 20110615
  2. CARBOPLATIN [Suspect]
     Indication: OVARIAN EPITHELIAL CANCER
     Dosage: 1 DF: 650AUC?LAST DOSE : 28SEP11
     Route: 042
     Dates: start: 20110615
  3. BEVACIZUMAB [Suspect]
     Indication: OVARIAN EPITHELIAL CANCER
     Dosage: LAST DOSE:28SEP11
     Route: 042
     Dates: start: 20110615

REACTIONS (1)
  - Gastrointestinal perforation [Recovered/Resolved]
